FAERS Safety Report 8695615 (Version 4)
Quarter: 2013Q2

REPORT INFORMATION
  Report Type: Report from Study
  Country: US (occurrence: US)
  Receive Date: 20120731
  Receipt Date: 20130501
  Transmission Date: 20140414
  Serious: Yes (Other)
  Sender: FDA-Public Use
  Company Number: US-ABBOTT-12P-163-0959263-00

PATIENT
  Age: 55 Year
  Sex: Female
  Weight: 65.38 kg

DRUGS (6)
  1. HUMIRA [Suspect]
     Indication: CROHN^S DISEASE
     Dates: start: 201006, end: 20120314
  2. HUMIRA [Suspect]
     Dates: start: 20120503, end: 20120517
  3. HUMIRA [Suspect]
     Dates: start: 20120708, end: 20130324
  4. SEVERAL CHINESE HERBS [Concomitant]
     Indication: PRODUCT USED FOR UNKNOWN INDICATION
  5. SEVERAL CHINESE HERBS [Concomitant]
  6. RANITIDINE [Concomitant]
     Indication: GASTRIC DISORDER

REACTIONS (27)
  - Inguinal hernia [Unknown]
  - Abdominal pain [Recovered/Resolved]
  - Cholelithiasis [Unknown]
  - Appendicectomy [Unknown]
  - Ileal stenosis [Unknown]
  - Abdominal pain [Unknown]
  - Postoperative adhesion [Unknown]
  - Chest pain [Unknown]
  - Injection site swelling [Recovered/Resolved]
  - Injection site bruising [Recovered/Resolved]
  - Device malfunction [Unknown]
  - Incorrect dose administered [Unknown]
  - Injection site erythema [Not Recovered/Not Resolved]
  - Dyspepsia [Unknown]
  - Incision site abscess [Recovered/Resolved]
  - Unevaluable event [Unknown]
  - Joint dislocation [Unknown]
  - Musculoskeletal pain [Unknown]
  - Drug effect decreased [Not Recovered/Not Resolved]
  - Diarrhoea [Not Recovered/Not Resolved]
  - Constipation [Not Recovered/Not Resolved]
  - Haematochezia [Not Recovered/Not Resolved]
  - Arthralgia [Not Recovered/Not Resolved]
  - Joint swelling [Not Recovered/Not Resolved]
  - Back pain [Not Recovered/Not Resolved]
  - Fibromyalgia [Not Recovered/Not Resolved]
  - Blood urine present [Not Recovered/Not Resolved]
